FAERS Safety Report 6186732-6 (Version None)
Quarter: 2009Q2

REPORT INFORMATION
  Report Type: 
  Country: None (occurrence: None)
  Receive Date: 20090508
  Receipt Date: 20090428
  Transmission Date: 20091009
  Serious: No
  Sender: FDA-Public Use
  Company Number: 8045448

PATIENT

DRUGS (3)
  1. KEPPRA [Suspect]
     Dosage: 1000 MG 1/D PO
     Route: 048
  2. KEPPRA [Suspect]
     Dosage: 250 MG 1/D PO
     Route: 048
  3. DILANTIN [Concomitant]

REACTIONS (5)
  - CONVULSION [None]
  - INAPPROPRIATE SCHEDULE OF DRUG ADMINISTRATION [None]
  - MECHANICAL URTICARIA [None]
  - MOOD SWINGS [None]
  - PRURITUS [None]
